FAERS Safety Report 7244663-4 (Version None)
Quarter: 2011Q1

REPORT INFORMATION
  Report Type: 
  Country: None (occurrence: None)
  Receive Date: 20110125
  Receipt Date: 20101220
  Transmission Date: 20110831
  Serious: No
  Sender: FDA-Public Use
  Company Number: US-MYLANLABS-2010S1021222

PATIENT
  Age: 68 Year
  Sex: Female
  Weight: 72.58 kg

DRUGS (5)
  1. ASPIRIN [Concomitant]
     Route: 048
     Dates: start: 20090101
  2. LEVETIRACETAM [Suspect]
     Indication: CONVULSION
     Route: 048
     Dates: start: 20100801
  3. LOVASTATIN [Concomitant]
     Indication: BLOOD CHOLESTEROL INCREASED
     Route: 048
     Dates: start: 20090101
  4. DIVALPROEX SODIUM [Suspect]
     Indication: CONVULSION
     Dates: start: 20100701, end: 20100801
  5. LEVOTHYROXINE SODIUM [Concomitant]
     Indication: HYPOTHYROIDISM
     Route: 048
     Dates: start: 20090101

REACTIONS (7)
  - TOOTHACHE [None]
  - DIZZINESS [None]
  - EAR PAIN [None]
  - GINGIVAL PAIN [None]
  - SOMNOLENCE [None]
  - HEADACHE [None]
  - HYPOACUSIS [None]
